FAERS Safety Report 16342373 (Version 1)
Quarter: 2019Q2

REPORT INFORMATION
  Report Type: Spontaneous
  Country: JP (occurrence: JP)
  Receive Date: 20190522
  Receipt Date: 20190522
  Transmission Date: 20190711
  Serious: Yes (Other)
  Sender: FDA-Public Use
  Company Number: JP-PFIZER INC-2019208226

PATIENT
  Age: 28 Year
  Sex: Male

DRUGS (4)
  1. HYDROCORTISONE. [Suspect]
     Active Substance: HYDROCORTISONE
     Dosage: UNK
  2. GROWTH HORMONE RELEASING PEPTIDE-2 [Suspect]
     Active Substance: PRALMORELIN
     Dosage: UNK
  3. GROWTH HORMONE RELEASING PEPTIDE-2 [Suspect]
     Active Substance: PRALMORELIN
     Dosage: UNK
  4. LEVOTHYROXINE. [Concomitant]
     Active Substance: LEVOTHYROXINE
     Dosage: UNK

REACTIONS (2)
  - Condition aggravated [Recovering/Resolving]
  - Hepatic steatosis [Recovering/Resolving]
